FAERS Safety Report 20937439 (Version 1)
Quarter: 2022Q2

REPORT INFORMATION
  Report Type: Spontaneous
  Country: BR (occurrence: BR)
  Receive Date: 20220609
  Receipt Date: 20220609
  Transmission Date: 20220721
  Serious: Yes (Other)
  Sender: FDA-Public Use
  Company Number: BR-TAKEDA-2022TUS036908

PATIENT
  Sex: Female

DRUGS (2)
  1. LISDEXAMFETAMINE DIMESYLATE [Suspect]
     Active Substance: LISDEXAMFETAMINE DIMESYLATE
     Indication: Product used for unknown indication
     Dosage: UNK
     Route: 065
  2. LISDEXAMFETAMINE DIMESYLATE [Suspect]
     Active Substance: LISDEXAMFETAMINE DIMESYLATE
     Dosage: UNK
     Route: 065

REACTIONS (11)
  - Drug dependence [Unknown]
  - Impaired quality of life [Unknown]
  - Adulterated product [Unknown]
  - Drug ineffective [Unknown]
  - Fatigue [Unknown]
  - Discouragement [Unknown]
  - Somnolence [Unknown]
  - Headache [Unknown]
  - Nervousness [Unknown]
  - Feeling abnormal [Unknown]
  - Antisocial behaviour [Unknown]
